FAERS Safety Report 4509284-2 (Version None)
Quarter: 2004Q4

REPORT INFORMATION
  Report Type: 
  Country: None (occurrence: None)
  Receive Date: 20041025
  Receipt Date: 20040709
  Transmission Date: 20050328
  Serious: Yes (Hospitalization)
  Sender: FDA-Public Use
  Company Number: US-JNJFOC-20040702953

PATIENT
  Age: 70 Year
  Sex: Female

DRUGS (11)
  1. INFLIXIMAB (INFLIXIMAB, RECOMBINANT) LYOPHILIZED POWDER [Suspect]
     Indication: RHEUMATOID ARTHRITIS
     Dosage: INTRAVENOUS
     Route: 042
     Dates: start: 20020220
  2. INFLIXIMAB (INFLIXIMAB, RECOMBINANT) LYOPHILIZED POWDER [Suspect]
     Indication: RHEUMATOID ARTHRITIS
     Dosage: INTRAVENOUS
     Route: 042
     Dates: start: 20030321
  3. METHOTREXATE [Concomitant]
  4. FOLIC ACID [Concomitant]
  5. THEOPHYLLINE [Concomitant]
  6. ACCOLATE [Concomitant]
  7. CALCIUM (CALCIUM) [Concomitant]
  8. FOSAMAX [Concomitant]
  9. TRAZADONE (TRAZODONE) [Concomitant]
  10. LORACET (LORACARBEF) [Concomitant]
  11. MAGNESIUM (MAGNESIUM) [Concomitant]

REACTIONS (1)
  - PNEUMONIA [None]
